FAERS Safety Report 9080803 (Version 1)
Quarter: 2013Q1

REPORT INFORMATION
  Report Type: Spontaneous
  Country: DE (occurrence: DE)
  Receive Date: 20130131
  Receipt Date: 20130131
  Transmission Date: 20140127
  Serious: Yes (Hospitalization)
  Sender: FDA-Public Use
  Company Number: DE-AMGEN-DEUSP2013006584

PATIENT
  Sex: Female

DRUGS (2)
  1. ENBREL [Suspect]
     Indication: PSORIATIC ARTHROPATHY
     Dosage: UNK
     Route: 065
     Dates: start: 20120412, end: 20130115
  2. NALOXONE HYDROCHLORIDE W/TILIDINE HYDROCHLO. [Concomitant]
     Dosage: UNK

REACTIONS (1)
  - Necrosis [Not Recovered/Not Resolved]
